FAERS Safety Report 6308774-X (Version None)
Quarter: 2009Q3

REPORT INFORMATION
  Report Type: 
  Country: None (occurrence: None)
  Receive Date: 20090813
  Receipt Date: 20080516
  Transmission Date: 20100115
  Serious: No
  Sender: FDA-Public Use
  Company Number: US-ALLERGAN-0805960US

PATIENT
  Sex: Female

DRUGS (4)
  1. COMBIGAN [Suspect]
     Indication: GLAUCOMA
  2. ALPHAGAN [Concomitant]
     Indication: GLAUCOMA
  3. TOPROL-XL [Concomitant]
  4. AMITRIPTYLINE [Concomitant]

REACTIONS (2)
  - EYE IRRITATION [None]
  - FATIGUE [None]
